FAERS Safety Report 9255228 (Version 1)
Quarter: 2013Q2

REPORT INFORMATION
  Report Type: Spontaneous
  Country: US (occurrence: US)
  Receive Date: 20130425
  Receipt Date: 20130425
  Transmission Date: 20140414
  Serious: Yes (Hospitalization)
  Sender: FDA-Public Use
  Company Number: US-BAYER-2013-050488

PATIENT
  Age: 64 Year
  Sex: Female
  Weight: 73.92 kg

DRUGS (8)
  1. BETASERON [Suspect]
     Dosage: 0.25 MG, QOD
     Route: 058
  2. WARFARIN [Suspect]
     Dosage: 1 MG, UNK
     Route: 048
  3. PANTOPRAZOLE [Concomitant]
     Dosage: 200 MG, UNK
     Route: 048
  4. AMLODIPINE [Concomitant]
     Dosage: 2.5 MG, UNK
     Route: 048
  5. FISH OIL [Concomitant]
     Dosage: 1000 MG, UNK
     Route: 048
  6. NIACIN [Concomitant]
     Dosage: 500 MG, UNK
     Route: 048
  7. MULTIVITAMINS [Concomitant]
     Route: 048
  8. CALCIUM +VIT D [Concomitant]
     Route: 048

REACTIONS (1)
  - Large intestinal haemorrhage [None]
